FAERS Safety Report 20936849 (Version 1)
Quarter: 2022Q2

REPORT INFORMATION
  Report Type: Spontaneous
  Country: US (occurrence: None)
  Receive Date: 20220609
  Receipt Date: 20220609
  Transmission Date: 20220720
  Serious: No
  Sender: FDA-Public Use
  Company Number: US-ROCHE-2893259

PATIENT
  Age: 68 Year
  Sex: Female
  Weight: 81.720 kg

DRUGS (6)
  1. ACTEMRA [Suspect]
     Active Substance: TOCILIZUMAB
     Indication: Rheumatoid arthritis
     Dosage: 162MG/0.9ML EVERY OTHER WEEK
     Route: 058
     Dates: start: 20210807
  2. ACTEMRA [Suspect]
     Active Substance: TOCILIZUMAB
  3. ACTEMRA [Suspect]
     Active Substance: TOCILIZUMAB
  4. ACTEMRA [Suspect]
     Active Substance: TOCILIZUMAB
     Indication: Rheumatoid arthritis
     Route: 058
     Dates: start: 202107, end: 202108
  5. ACTEMRA [Suspect]
     Active Substance: TOCILIZUMAB
  6. METOPROLOL [Concomitant]
     Active Substance: METOPROLOL
     Indication: Arrhythmia
     Route: 048
     Dates: start: 2020

REACTIONS (4)
  - Aphthous ulcer [Not Recovered/Not Resolved]
  - Oropharyngeal pain [Not Recovered/Not Resolved]
  - Nasopharyngitis [Not Recovered/Not Resolved]
  - Stomatitis [Unknown]

NARRATIVE: CASE EVENT DATE: 20210811
